FAERS Safety Report 20355289 (Version 2)
Quarter: 2022Q1

REPORT INFORMATION
  Report Type: Spontaneous
  Country: IT (occurrence: IT)
  Receive Date: 20220120
  Receipt Date: 20220220
  Transmission Date: 20220423
  Serious: Yes (Other)
  Sender: FDA-Public Use
  Company Number: None

PATIENT
  Age: 47 Year
  Sex: Female
  Weight: 55 kg

DRUGS (4)
  1. CLOZAPINE [Suspect]
     Active Substance: CLOZAPINE
     Indication: Affective disorder
     Dosage: 25 MG
     Route: 048
     Dates: start: 20211021, end: 20211027
  2. DIAZEPAM [Suspect]
     Active Substance: DIAZEPAM
     Indication: Generalised anxiety disorder
     Dosage: 2 MG
     Route: 048
     Dates: start: 20211018, end: 20211106
  3. FLUVOXAMINE [Concomitant]
     Active Substance: FLUVOXAMINE
     Indication: Affective disorder
     Dosage: 50 MG
     Route: 048
     Dates: start: 20211018, end: 20211106
  4. VALPROIC ACID [Concomitant]
     Active Substance: VALPROIC ACID
     Indication: Affective disorder
     Dosage: 300 MG
     Route: 048
     Dates: start: 20211018, end: 20211106

REACTIONS (2)
  - Hypotensive crisis [Recovered/Resolved]
  - Balance disorder [Recovered/Resolved]

NARRATIVE: CASE EVENT DATE: 20211024
